FAERS Safety Report 5045711-2 (Version None)
Quarter: 2006Q2

REPORT INFORMATION
  Report Type: 
  Country: None (occurrence: None)
  Receive Date: 20060601
  Receipt Date: 20060223
  Transmission Date: 20061013
  Serious: No
  Sender: FDA-Public Use
  Company Number: US200602004949

PATIENT
  Age: 54 Year
  Sex: Male

DRUGS (4)
  1. CYMBALTA [Suspect]
     Indication: DEPRESSION
     Dosage: SEE IMAGE
     Route: 048
     Dates: start: 20060203, end: 20060216
  2. CYMBALTA [Suspect]
     Indication: DEPRESSION
     Dosage: SEE IMAGE
     Route: 048
     Dates: start: 20060217
  3. INSULIN LISPRO (INSULIN LISPRO) [Concomitant]
  4. LANTUS [Concomitant]

REACTIONS (5)
  - FEELING ABNORMAL [None]
  - HEADACHE [None]
  - MENTAL IMPAIRMENT [None]
  - NAUSEA [None]
  - PERSONALITY CHANGE [None]
